FAERS Safety Report 5902835-2 (Version None)
Quarter: 2008Q3

REPORT INFORMATION
  Report Type: 
  Country: None (occurrence: None)
  Receive Date: 20080929
  Receipt Date: 20080929
  Transmission Date: 20090109
  Serious: No
  Sender: FDA-Public Use
  Company Number: None

PATIENT
  Age: 40 Year
  Sex: Female
  Weight: 72.5755 kg

DRUGS (2)
  1. MACROBID [Suspect]
     Indication: CYSTITIS
     Dosage: 100M  TWICE DAILY
     Dates: start: 20080722, end: 20080802
  2. MACROBID [Suspect]
     Indication: CYSTITIS
     Dosage: 100M  TWICE DAILY
     Dates: start: 20080925, end: 20080925

REACTIONS (4)
  - DYSPNOEA [None]
  - HEADACHE [None]
  - PAIN [None]
  - PYREXIA [None]
